FAERS Safety Report 23993654 (Version 1)
Quarter: 2024Q2

REPORT INFORMATION
  Report Type: Spontaneous
  Country: US (occurrence: None)
  Receive Date: 20240618
  Receipt Date: 20240618
  Transmission Date: 20240716
  Serious: Yes (Other)
  Sender: FDA-Public Use
  Company Number: None

PATIENT
  Age: 71 Year
  Sex: Female

DRUGS (25)
  1. AMBRISENTAN [Suspect]
     Active Substance: AMBRISENTAN
     Indication: Pulmonary arterial hypertension
     Dosage: FREQUENCY : DAILY;?
     Route: 048
     Dates: start: 20150724
  2. SILDENAFIL [Concomitant]
     Active Substance: SILDENAFIL
  3. SELEXIPAG [Concomitant]
     Active Substance: SELEXIPAG
  4. ATORVASTATIN [Concomitant]
     Active Substance: ATORVASTATIN
  5. MODAFINIL [Concomitant]
     Active Substance: MODAFINIL
  6. BUPRENORPHINE [Concomitant]
     Active Substance: BUPRENORPHINE\BUPRENORPHINE HYDROCHLORIDE
  7. TRAMADOL [Concomitant]
     Active Substance: TRAMADOL\TRAMADOL HYDROCHLORIDE
  8. BUPROPION [Concomitant]
     Active Substance: BUPROPION
  9. ALENDRONATE [Concomitant]
     Active Substance: ALENDRONATE SODIUM
  10. METOPROLOL [Concomitant]
     Active Substance: METOPROLOL
  11. POTASSIUM CHLORIDE [Concomitant]
     Active Substance: POTASSIUM CHLORIDE
  12. VENLAFAXINE [Concomitant]
     Active Substance: VENLAFAXINE HYDROCHLORIDE
  13. OXCARBAZEPINE [Concomitant]
     Active Substance: OXCARBAZEPINE
  14. GABAPENTIN [Concomitant]
     Active Substance: GABAPENTIN
  15. LAMOTRIGINE [Concomitant]
     Active Substance: LAMOTRIGINE
  16. ONDANSETRON [Concomitant]
     Active Substance: ONDANSETRON
  17. BUROSEMIDE [Concomitant]
  18. MELATONIN [Concomitant]
     Active Substance: MELATONIN
  19. VITAMIN B12 [Concomitant]
     Active Substance: CYANOCOBALAMIN
  20. NARCAN [Concomitant]
     Active Substance: NALOXONE HYDROCHLORIDE
  21. ACETAMINOPHEN [Concomitant]
     Active Substance: ACETAMINOPHEN
  22. VITAMIN D3 [Concomitant]
     Active Substance: CHOLECALCIFEROL
  23. VITAMIN B COMPLEX [Concomitant]
     Active Substance: CYANOCOBALAMIN\DEXPANTHENOL\NIACINAMIDE\PYRIDOXINE HYDROCHLORIDE\RIBOFLAVIN 5^-PHOSPHATE SODIUM\THIA
  24. FERROUS SULFATE [Concomitant]
     Active Substance: FERROUS SULFATE
  25. OXYGEN [Concomitant]
     Active Substance: OXYGEN

REACTIONS (1)
  - Subcutaneous abscess [None]

NARRATIVE: CASE EVENT DATE: 20240523
